FAERS Safety Report 13568721 (Version 1)
Quarter: 2017Q2

REPORT INFORMATION
  Report Type: Spontaneous
  Country: US (occurrence: US)
  Receive Date: 20170522
  Receipt Date: 20170522
  Transmission Date: 20170830
  Serious: Yes (Death, Hospitalization)
  Sender: FDA-Public Use
  Company Number: US-INSYS THERAPEUTICS, INC-INS201705-000320

PATIENT
  Age: 53 Year
  Sex: Male

DRUGS (12)
  1. SUBSYS [Suspect]
     Active Substance: FENTANYL
     Indication: BREAKTHROUGH PAIN
     Route: 060
  2. NOVOLOG [Concomitant]
     Active Substance: INSULIN ASPART
  3. METHADONE [Concomitant]
     Active Substance: METHADONE HYDROCHLORIDE
  4. COLACE [Concomitant]
     Active Substance: DOCUSATE SODIUM
  5. ZANTAC [Concomitant]
     Active Substance: RANITIDINE HYDROCHLORIDE
  6. LISINOPRIL. [Concomitant]
     Active Substance: LISINOPRIL
  7. LEVEMIR [Concomitant]
     Active Substance: INSULIN DETEMIR
  8. NYSTATIN. [Concomitant]
     Active Substance: NYSTATIN
  9. SUBSYS [Suspect]
     Active Substance: FENTANYL
     Route: 060
  10. NORCO [Concomitant]
     Active Substance: ACETAMINOPHEN\HYDROCODONE BITARTRATE
  11. ZOFRAN [Concomitant]
     Active Substance: ONDANSETRON HYDROCHLORIDE
  12. LACTOSE [Concomitant]
     Active Substance: LACTOSE

REACTIONS (1)
  - Neoplasm progression [Fatal]

NARRATIVE: CASE EVENT DATE: 20170512
